FAERS Safety Report 4738620-7 (Version None)
Quarter: 2005Q3

REPORT INFORMATION
  Report Type: 
  Country: None (occurrence: None)
  Receive Date: 20050808
  Receipt Date: 20050808
  Transmission Date: 20060218
  Serious: Yes (Hospitalization)
  Sender: FDA-Public Use
  Company Number: None

PATIENT
  Age: 56 Year
  Sex: Female
  Weight: 89.5 kg

DRUGS (8)
  1. GEMCITABINE [Suspect]
     Indication: NON-SMALL CELL LUNG CANCER STAGE IV
     Dosage: 1000MGM/M2 IV DAY 1 + DAY 8  (2 CYCLES WERE GIVEN)
     Route: 042
     Dates: start: 20050707
  2. GEMCITABINE [Suspect]
     Indication: NON-SMALL CELL LUNG CANCER STAGE IV
     Dosage: 1000MGM/M2 IV DAY 1 + DAY 8  (2 CYCLES WERE GIVEN)
     Route: 042
     Dates: start: 20050714
  3. CARBOPLATIN [Suspect]
     Indication: NON-SMALL CELL LUNG CANCER STAGE IV
     Dosage: IV  AVC 5   DAY 1   (MOST RECENT)
     Route: 042
     Dates: start: 20050707
  4. MS CONTIN [Concomitant]
  5. ALBUTEROL [Concomitant]
  6. LORAZEPAM [Concomitant]
  7. PROTONIX [Concomitant]
  8. LOVENOX [Concomitant]

REACTIONS (2)
  - DISEASE PROGRESSION [None]
  - DYSPNOEA [None]
